FAERS Safety Report 13802407 (Version 1)
Quarter: 2017Q3

REPORT INFORMATION
  Report Type: Spontaneous
  Country: US (occurrence: US)
  Receive Date: 20170727
  Receipt Date: 20170727
  Transmission Date: 20171127
  Serious: No
  Sender: FDA-Public Use
  Company Number: GXBR2017US002216

PATIENT
  Sex: Female

DRUGS (2)
  1. HYDROCHLOROTHIAZIDE TABLETS USP [Suspect]
     Active Substance: HYDROCHLOROTHIAZIDE
     Indication: PRODUCT USED FOR UNKNOWN INDICATION
     Route: 065
  2. TIMOLOL. [Suspect]
     Active Substance: TIMOLOL
     Indication: PRODUCT USED FOR UNKNOWN INDICATION
     Dosage: UNK DF, UNK
     Route: 047

REACTIONS (2)
  - Drug interaction [Not Recovered/Not Resolved]
  - Insomnia [Not Recovered/Not Resolved]
